FAERS Safety Report 5422081-9 (Version None)
Quarter: 2007Q3

REPORT INFORMATION
  Report Type: 
  Country: None (occurrence: None)
  Receive Date: 20070822
  Receipt Date: 20070820
  Transmission Date: 20080115
  Serious: Yes (Hospitalization)
  Sender: FDA-Public Use
  Company Number: US-BRISTOL-MYERS SQUIBB COMPANY-13883368

PATIENT
  Age: 36 Year
  Sex: Male
  Weight: 67 kg

DRUGS (2)
  1. CISPLATIN [Suspect]
     Indication: LARYNGEAL CANCER
     Dates: start: 20070806, end: 20070806
  2. RADIATION THERAPY [Suspect]
     Indication: LARYNGEAL CANCER
     Dosage: 6 GY
     Dates: end: 20070810

REACTIONS (3)
  - DEHYDRATION [None]
  - NAUSEA [None]
  - VOMITING [None]
